FAERS Safety Report 19891049 (Version 1)
Quarter: 2021Q3

REPORT INFORMATION
  Report Type: Report from Study
  Country: None (occurrence: CA)
  Receive Date: 20210927
  Receipt Date: 20210927
  Transmission Date: 20211014
  Serious: Yes (Other)
  Sender: FDA-Public Use
  Company Number: CA-ABBVIE-21K-028-4090453-00

PATIENT
  Sex: Female

DRUGS (5)
  1. RINVOQ [Suspect]
     Active Substance: UPADACITINIB
     Indication: RHEUMATOID ARTHRITIS
     Route: 048
     Dates: start: 20201207, end: 2021
  2. COVID?19 VACCINE [Concomitant]
     Route: 030
     Dates: start: 20210717, end: 20210717
  3. RINVOQ [Suspect]
     Active Substance: UPADACITINIB
     Route: 048
     Dates: start: 2021, end: 2021
  4. RINVOQ [Suspect]
     Active Substance: UPADACITINIB
     Route: 048
     Dates: start: 202107
  5. COVID?19 VACCINE [Concomitant]
     Indication: COVID-19 IMMUNISATION
     Route: 030
     Dates: start: 2021, end: 2021

REACTIONS (7)
  - Diarrhoea [Recovering/Resolving]
  - Musculoskeletal disorder [Unknown]
  - Gastrooesophageal reflux disease [Unknown]
  - Headache [Recovering/Resolving]
  - Speech disorder [Unknown]
  - Cerebrovascular accident [Recovered/Resolved]
  - Cerebrovascular accident [Unknown]

NARRATIVE: CASE EVENT DATE: 2021
